FAERS Safety Report 8617604-2 (Version None)
Quarter: 2012Q3

REPORT INFORMATION
  Report Type: 
  Country: None (occurrence: None)
  Receive Date: 20120824
  Receipt Date: 20120213
  Transmission Date: 20120928
  Serious: No
  Sender: FDA-Public Use
  Company Number: US-ASTRAZENECA-2011SE72584

PATIENT
  Age: 63 Year
  Sex: Female
  Weight: 88.9 kg

DRUGS (4)
  1. PREDNISONE TAB [Concomitant]
  2. SOLU-MEDROL [Concomitant]
  3. SYMBICORT [Suspect]
     Route: 055
  4. PROAIR HFA [Concomitant]
     Indication: ASTHMA
     Dosage: TWO PUFFS

REACTIONS (4)
  - RESPIRATORY DISORDER [None]
  - DRUG DOSE OMISSION [None]
  - ASTHMA [None]
  - HYPERTENSION [None]
